FAERS Safety Report 16939245 (Version 2)
Quarter: 2020Q2

REPORT INFORMATION
  Report Type: Report from Study
  Country: GB (occurrence: GB)
  Receive Date: 20191021
  Receipt Date: 20200403
  Transmission Date: 20200713
  Serious: Yes (Other)
  Sender: FDA-Public Use
  Company Number: GB-BRISTOL-MYERS SQUIBB COMPANY-BMS-2017-009180

PATIENT
  Age: 68 Year
  Sex: Male

DRUGS (2)
  1. METHOTREXATE. [Concomitant]
     Active Substance: METHOTREXATE
     Indication: PRODUCT USED FOR UNKNOWN INDICATION
     Dosage: UNK
     Route: 065
  2. ABATACEPT [Suspect]
     Active Substance: ABATACEPT
     Indication: RHEUMATOID ARTHRITIS
     Dosage: 125 MILLIGRAM, QWK
     Route: 058
     Dates: start: 20151008

REACTIONS (6)
  - Dementia [Unknown]
  - Transient ischaemic attack [Unknown]
  - Lower respiratory tract infection [Unknown]
  - Infection [Unknown]
  - Malaise [Unknown]
  - Pharyngitis [Unknown]

NARRATIVE: CASE EVENT DATE: 202003
